FAERS Safety Report 18126873 (Version 3)
Quarter: 2020Q3

REPORT INFORMATION
  Report Type: Other
  Country: JP (occurrence: JP)
  Receive Date: 20200810
  Receipt Date: 20200907
  Transmission Date: 20201103
  Serious: Yes (Other)
  Sender: FDA-Public Use
  Company Number: JP-ROCHE-2655849

PATIENT
  Age: 43 Year
  Sex: Female

DRUGS (5)
  1. PACLITAXEL. [Concomitant]
     Active Substance: PACLITAXEL
  2. EMTRICITABINE [Concomitant]
     Active Substance: EMTRICITABINE
  3. DOLUTEGRAVIR [Concomitant]
     Active Substance: DOLUTEGRAVIR
  4. AVASTIN [Suspect]
     Active Substance: BEVACIZUMAB
     Indication: BREAST CANCER
     Dosage: DOSAGE IS UNCERTAIN.
     Route: 041
  5. TENOFOVIR ALAFENAMIDE [Concomitant]
     Active Substance: TENOFOVIR ALAFENAMIDE

REACTIONS (3)
  - Metastases to liver [Unknown]
  - Paralysis recurrent laryngeal nerve [Unknown]
  - Metastases to bone [Unknown]
